FAERS Safety Report 8041224-4 (Version None)
Quarter: 2012Q1

REPORT INFORMATION
  Report Type: 
  Country: None (occurrence: None)
  Receive Date: 20120109
  Receipt Date: 20111227
  Transmission Date: 20120608
  Serious: Yes (Other)
  Sender: FDA-Public Use
  Company Number: 2011P1015352

PATIENT
  Age: 70 Year
  Sex: Female

DRUGS (1)
  1. CEFUROXIME [Suspect]
     Indication: DRUG ADMINISTRATION ERROR
     Dosage: 0.5 ML;X1

REACTIONS (4)
  - RETINAL OEDEMA [None]
  - WRONG TECHNIQUE IN DRUG USAGE PROCESS [None]
  - RETINAL HAEMORRHAGE [None]
  - MACULAR ISCHAEMIA [None]
